FAERS Safety Report 24726687 (Version 2)
Quarter: 2025Q1

REPORT INFORMATION
  Report Type: Report from Study
  Country: GB (occurrence: GB)
  Receive Date: 20241212
  Receipt Date: 20250124
  Transmission Date: 20250408
  Serious: Yes (Other)
  Sender: NOVARTIS
  Company Number: GB-002147023-NVSC2024GB140429

PATIENT
  Age: 53 Year
  Sex: Female

DRUGS (5)
  1. KESIMPTA [Suspect]
     Active Substance: OFATUMUMAB
     Indication: Relapsing-remitting multiple sclerosis
     Dosage: 20 MG, QW (FIRST DOSE)
     Route: 058
     Dates: start: 20240625
  2. KESIMPTA [Suspect]
     Active Substance: OFATUMUMAB
     Route: 058
  3. KESIMPTA [Suspect]
     Active Substance: OFATUMUMAB
     Route: 058
  4. KESIMPTA [Suspect]
     Active Substance: OFATUMUMAB
     Dosage: 20 MG, QMO
     Route: 058
  5. SERTRALINE [Concomitant]
     Active Substance: SERTRALINE HYDROCHLORIDE
     Indication: Product used for unknown indication
     Route: 065
     Dates: start: 20241223

REACTIONS (17)
  - Suicidal ideation [Recovered/Resolved]
  - Fatigue [Recovered/Resolved]
  - Muscle spasms [Recovered/Resolved]
  - Pain [Recovered/Resolved]
  - Pollakiuria [Recovered/Resolved]
  - Facial spasm [Recovered/Resolved]
  - Fatigue [Recovering/Resolving]
  - Muscle twitching [Unknown]
  - Bladder spasm [Recovered/Resolved]
  - Muscular weakness [Recovered/Resolved]
  - Bladder irritation [Recovered/Resolved]
  - Urinary incontinence [Recovered/Resolved]
  - Dysuria [Recovered/Resolved]
  - Micturition urgency [Recovered/Resolved]
  - Gastrointestinal motility disorder [Recovered/Resolved]
  - Gait disturbance [Recovered/Resolved]
  - Depression [Recovered/Resolved]

NARRATIVE: CASE EVENT DATE: 20240625
